FAERS Safety Report 9597093 (Version 1)
Quarter: 2013Q4

REPORT INFORMATION
  Report Type: Spontaneous
  Country: US (occurrence: US)
  Receive Date: 20131004
  Receipt Date: 20131004
  Transmission Date: 20140711
  Serious: Yes (Hospitalization)
  Sender: FDA-Public Use
  Company Number: US-B.I. PHARMACEUTICALS,INC./RIDGEFIELD-2013-BI-30924BP

PATIENT
  Age: 53 Year
  Sex: Male

DRUGS (1)
  1. SPIRIVA [Suspect]
     Route: 055
     Dates: start: 201301

REACTIONS (3)
  - Cardiac failure congestive [Unknown]
  - Local swelling [Recovered/Resolved]
  - Local swelling [Recovered/Resolved]
